FAERS Safety Report 5840984-8 (Version None)
Quarter: 2008Q3

REPORT INFORMATION
  Report Type: 
  Country: None (occurrence: None)
  Receive Date: 20080811
  Receipt Date: 20080804
  Transmission Date: 20090109
  Serious: Yes (Hospitalization, Other)
  Sender: FDA-Public Use
  Company Number: JP-ABBOTT-08P-087-0450996-00

PATIENT
  Sex: Male
  Weight: 21.2 kg

DRUGS (2)
  1. CEFDINIR [Suspect]
     Indication: UPPER RESPIRATORY TRACT INFECTION
  2. PARACETAMOL [Suspect]
     Indication: UPPER RESPIRATORY TRACT INFECTION

REACTIONS (2)
  - ERYTHEMA MULTIFORME [None]
  - VANISHING BILE DUCT SYNDROME [None]
